FAERS Safety Report 11282877 (Version 1)
Quarter: 2015Q3

REPORT INFORMATION
  Report Type: Spontaneous
  Country: US (occurrence: None)
  Receive Date: 20150717
  Receipt Date: 20150717
  Transmission Date: 20151125
  Serious: No
  Sender: FDA-Public Use
  Company Number: None

PATIENT
  Age: 49 Year
  Sex: Female
  Weight: 68.04 kg

DRUGS (1)
  1. TECFIDERA [Suspect]
     Active Substance: DIMETHYL FUMARATE
     Indication: MULTIPLE SCLEROSIS
     Route: 048
     Dates: start: 20150618, end: 20150622

REACTIONS (6)
  - Pyrexia [None]
  - Syncope [None]
  - Rash [None]
  - Vomiting [None]
  - Diarrhoea [None]
  - Urticaria [None]

NARRATIVE: CASE EVENT DATE: 20150622
